FAERS Safety Report 4389744-8 (Version None)
Quarter: 2004Q2

REPORT INFORMATION
  Report Type: 
  Country: None (occurrence: None)
  Receive Date: 20040629
  Receipt Date: 20030710
  Transmission Date: 20050107
  Serious: Yes (Death)
  Sender: FDA-Public Use
  Company Number: US-JNJFOC-20030601447

PATIENT
  Age: 69 Year
  Sex: Female
  Weight: 36.2878 kg

DRUGS (1)
  1. DURAGESIC [Suspect]
     Dosage: TRANSDERMAL
     Route: 062

REACTIONS (1)
  - RENAL FAILURE CHRONIC [None]
